FAERS Safety Report 5470350-9 (Version None)
Quarter: 2007Q3

REPORT INFORMATION
  Report Type: 
  Country: None (occurrence: None)
  Receive Date: 20070925
  Receipt Date: 20070903
  Transmission Date: 20080115
  Serious: Yes (Death, Hospitalization, Other)
  Sender: FDA-Public Use
  Company Number: JPKYO-S-20070039

PATIENT
  Age: 68 Year
  Sex: Female

DRUGS (4)
  1. NAVELBINE [Suspect]
     Indication: BREAST CANCER RECURRENT
     Dosage: 25 MG/M2 IV
     Route: 042
     Dates: start: 20070821, end: 20070821
  2. MYSRON. MFR: NOT SPECIFIED [Concomitant]
  3. LOXONIN. MFR: NOT SPECIFIED [Concomitant]
  4. OXYCONTIN. MFR: NOT SPECIFIED [Concomitant]

REACTIONS (5)
  - CARDIAC ARREST [None]
  - CARDIAC FAILURE ACUTE [None]
  - HYPOTENSION [None]
  - LEUKOPENIA [None]
  - PAIN IN EXTREMITY [None]
